FAERS Safety Report 11585917 (Version 2)
Quarter: 2015Q4

REPORT INFORMATION
  Report Type: Report from Study
  Country: US (occurrence: US)
  Receive Date: 20151001
  Receipt Date: 20151002
  Transmission Date: 20160304
  Serious: No
  Sender: FDA-Public Use
  Company Number: US-ABBVIE-15P-163-1344023-00

PATIENT
  Age: 70 Year
  Sex: Female
  Weight: 81.72 kg

DRUGS (2)
  1. ZEMPLAR [Suspect]
     Active Substance: PARICALCITOL
     Indication: HYPERPARATHYROIDISM
     Route: 048
     Dates: start: 201412, end: 201501
  2. ZEMPLAR [Suspect]
     Active Substance: PARICALCITOL
     Route: 065
     Dates: end: 201412

REACTIONS (21)
  - Nausea [Recovered/Resolved]
  - Dry skin [Recovered/Resolved]
  - Dry eye [Recovered/Resolved]
  - Urinary incontinence [Recovered/Resolved]
  - Balance disorder [Recovered/Resolved]
  - Dizziness [Recovered/Resolved]
  - Dry mouth [Recovered/Resolved]
  - Rash [Recovered/Resolved]
  - Diarrhoea [Recovered/Resolved]
  - Confusional state [Recovered/Resolved]
  - Insomnia [Recovered/Resolved]
  - Dyspnoea [Recovered/Resolved]
  - Headache [Recovered/Resolved]
  - Protein urine present [Unknown]
  - Blood urea increased [Unknown]
  - Blood parathyroid hormone increased [Unknown]
  - Decreased appetite [Recovered/Resolved]
  - Anal pruritus [Recovered/Resolved]
  - Peripheral swelling [Recovered/Resolved]
  - Vomiting [Recovered/Resolved]
  - Blood creatinine increased [Unknown]

NARRATIVE: CASE EVENT DATE: 201412
